FAERS Safety Report 7874885-0 (Version None)
Quarter: 2011Q4

REPORT INFORMATION
  Report Type: 
  Country: None (occurrence: None)
  Receive Date: 20111031
  Receipt Date: 20111024
  Transmission Date: 20120403
  Serious: Yes (Hospitalization, Other)
  Sender: FDA-Public Use
  Company Number: JP-JNJFOC-20110904431

PATIENT
  Age: 79 Year
  Sex: Female

DRUGS (3)
  1. LOPERAMIDE HCL [Suspect]
     Indication: DIARRHOEA
     Dosage: 2 CAPSULES PER DAY TWICE DAILY
     Route: 048
  2. VELCADE [Suspect]
     Indication: MULTIPLE MYELOMA
     Route: 042
     Dates: start: 20110831
  3. VELCADE [Suspect]
     Route: 042

REACTIONS (2)
  - DIARRHOEA [None]
  - DRUG INEFFECTIVE [None]
